FAERS Safety Report 9054669 (Version 1)
Quarter: 2013Q1

REPORT INFORMATION
  Report Type: Report from Study
  Country: US (occurrence: US)
  Receive Date: 20130208
  Receipt Date: 20130208
  Transmission Date: 20140127
  Serious: Yes (Hospitalization)
  Sender: FDA-Public Use
  Company Number: US-JNJFOC-20130201153

PATIENT
  Age: 44 None
  Sex: Female

DRUGS (3)
  1. STELARA [Suspect]
     Indication: PSORIASIS
     Route: 058
     Dates: end: 201204
  2. TRAZODONE [Concomitant]
     Indication: SLEEP DISORDER
     Route: 048
  3. CELEXA [Concomitant]
     Indication: MUSCLE DISORDER
     Route: 048

REACTIONS (2)
  - Hiatus hernia [Unknown]
  - Colectomy [Unknown]
